FAERS Safety Report 23508563 (Version 2)
Quarter: 2024Q1

REPORT INFORMATION
  Report Type: Spontaneous
  Country: CH (occurrence: CH)
  Receive Date: 20240209
  Receipt Date: 20240214
  Transmission Date: 20240410
  Serious: Yes (Death, Life-Threatening, Hospitalization, Other)
  Sender: FDA-Public Use
  Company Number: None

PATIENT
  Age: 56 Year
  Sex: Male
  Weight: 95 kg

DRUGS (26)
  1. ELIQUIS [Suspect]
     Active Substance: APIXABAN
     Indication: Pulmonary embolism
     Route: 048
     Dates: start: 20240108, end: 20240115
  2. DEXAMETHASONE [Suspect]
     Active Substance: DEXAMETHASONE
     Indication: Myelopathy
     Dosage: 1-1-1-1
     Route: 048
     Dates: start: 20231209, end: 20231210
  3. DEXAMETHASONE [Suspect]
     Active Substance: DEXAMETHASONE
     Indication: Spinal cord compression
     Dosage: 4 MG, 2-1-0-0
     Route: 048
     Dates: start: 20231211, end: 20231221
  4. DEXAMETHASONE [Suspect]
     Active Substance: DEXAMETHASONE
     Dosage: 2X4MG IN THE MORNING (2-0-0-0)
     Route: 048
     Dates: start: 20231222, end: 20240104
  5. DEXAMETHASONE [Suspect]
     Active Substance: DEXAMETHASONE
     Dosage: 1-0-0-0
     Route: 048
     Dates: start: 20240105, end: 20240116
  6. DEXAMETHASONE [Suspect]
     Active Substance: DEXAMETHASONE
     Dosage: 1-0-0
     Route: 048
     Dates: start: 20240117, end: 20240118
  7. METAMIZOLE [Suspect]
     Active Substance: METAMIZOLE
     Indication: Pain
     Route: 048
     Dates: start: 20231224, end: 20231227
  8. METAMIZOLE [Suspect]
     Active Substance: METAMIZOLE
     Dosage: SOLUTION 500 MG/1ML; GIVEN ML 1-1-1-1
     Route: 048
     Dates: start: 20240109, end: 20240118
  9. METAMIZOLE [Suspect]
     Active Substance: METAMIZOLE
     Dosage: 27/12 (MIDDAY)-28/12/2023 2-2-2-2)
     Route: 048
     Dates: start: 20231227, end: 20231228
  10. CIPROFLOXACIN [Concomitant]
     Active Substance: CIPROFLOXACIN
     Indication: Product used for unknown indication
     Route: 048
     Dates: start: 20231220, end: 20231221
  11. CIPROFLOXACIN [Concomitant]
     Active Substance: CIPROFLOXACIN
     Dosage: 1-0-1
     Route: 048
     Dates: start: 20240108, end: 20240117
  12. ZYPREXA [Concomitant]
     Active Substance: OLANZAPINE
     Indication: Product used for unknown indication
     Dosage: 0-0-0-1
     Route: 048
     Dates: start: 20231222, end: 20231226
  13. ZYPREXA [Concomitant]
     Active Substance: OLANZAPINE
     Dosage: 5 MG 0-0-0-2
     Route: 048
     Dates: start: 20231227, end: 20240118
  14. PANTOZOL [Concomitant]
     Active Substance: PANTOPRAZOLE SODIUM
     Indication: Product used for unknown indication
     Dosage: 1-0-0-0
     Route: 048
     Dates: start: 20231221, end: 20240116
  15. PANTOZOL [Concomitant]
     Active Substance: PANTOPRAZOLE SODIUM
     Route: 042
     Dates: start: 20240117, end: 20240119
  16. SODIUM PICOSULFATE [Concomitant]
     Active Substance: SODIUM PICOSULFATE
     Indication: Constipation
     Dosage: 0-0-10
     Route: 048
     Dates: start: 20231218, end: 20240106
  17. SODIUM PICOSULFATE [Concomitant]
     Active Substance: SODIUM PICOSULFATE
     Dosage: GTT 0-0-15
     Route: 048
     Dates: start: 20240107, end: 20240117
  18. NALOXONE HYDROCHLORIDE\OXYCODONE HYDROCHLORIDE [Concomitant]
     Active Substance: NALOXONE HYDROCHLORIDE\OXYCODONE HYDROCHLORIDE
     Indication: Product used for unknown indication
     Dosage: 5/2.5 MG 1-0-1
     Route: 048
     Dates: start: 20231208, end: 20240107
  19. NALOXONE HYDROCHLORIDE\OXYCODONE HYDROCHLORIDE [Concomitant]
     Active Substance: NALOXONE HYDROCHLORIDE\OXYCODONE HYDROCHLORIDE
     Dosage: 5/2.5MG 1-1-1
     Route: 048
     Dates: start: 20240108, end: 20240118
  20. DAFALGAN [Concomitant]
     Active Substance: ACETAMINOPHEN
     Indication: Product used for unknown indication
     Route: 048
     Dates: start: 20231208, end: 20231214
  21. DAFALGAN [Concomitant]
     Active Substance: ACETAMINOPHEN
     Route: 048
     Dates: start: 20231215, end: 20231219
  22. DAFALGAN [Concomitant]
     Active Substance: ACETAMINOPHEN
     Dosage: MAXIMUM 4 PER DAY ; AS NECESSARY
     Route: 048
     Dates: start: 20231220, end: 20240118
  23. OXYCODONE HYDROCHLORIDE [Concomitant]
     Active Substance: OXYCODONE HYDROCHLORIDE
     Indication: Product used for unknown indication
     Dosage: AS NECESSARY
     Route: 048
     Dates: start: 20231210, end: 20240118
  24. POLYETHYLENE GLYCOL 3350\POTASSIUM CHLORIDE\SODIUM BICARBONATE\SODIUM [Concomitant]
     Active Substance: POLYETHYLENE GLYCOL 3350\POTASSIUM CHLORIDE\SODIUM BICARBONATE\SODIUM CHLORIDE
     Indication: Constipation
     Dosage: MAX. 3 PER DAY ; AS NECESSARY
     Route: 048
     Dates: start: 20231210, end: 20240118
  25. NOVALGIN (METAMIZOLE SODIUM) [Concomitant]
     Active Substance: METAMIZOLE SODIUM
     Dosage: 1-1-1-1
     Dates: start: 20231223, end: 20231226
  26. NOVALGIN (METAMIZOLE SODIUM) [Concomitant]
     Active Substance: METAMIZOLE SODIUM
     Dosage: 2-2-2-2
     Dates: start: 20231208, end: 20231222

REACTIONS (6)
  - Upper gastrointestinal haemorrhage [Recovered/Resolved]
  - Duodenal ulcer [Unknown]
  - Multiple organ dysfunction syndrome [Fatal]
  - Peptic ulcer [Unknown]
  - Sepsis [Fatal]
  - Prescribed underdose [Unknown]

NARRATIVE: CASE EVENT DATE: 20240101
